FAERS Safety Report 15670534 (Version 2)
Quarter: 2018Q4

REPORT INFORMATION
  Report Type: Report from Study
  Country: CA (occurrence: CA)
  Receive Date: 20181129
  Receipt Date: 20181205
  Transmission Date: 20190205
  Serious: Yes (Death, Life-Threatening, Hospitalization)
  Sender: FDA-Public Use
  Company Number: CA-JNJFOC-20180933477

PATIENT
  Sex: Male
  Weight: 58 kg

DRUGS (1)
  1. STELARA [Suspect]
     Active Substance: USTEKINUMAB
     Indication: CROHN^S DISEASE
     Dosage: STRENGTH = 90 MG
     Route: 042
     Dates: start: 20180808

REACTIONS (8)
  - Death [Fatal]
  - Crohn^s disease [Not Recovered/Not Resolved]
  - Hepatic cirrhosis [Unknown]
  - Intestinal stenosis [Recovered/Resolved]
  - Stenotrophomonas infection [Unknown]
  - Small intestinal obstruction [Recovered/Resolved]
  - Ascites [Unknown]
  - Peritonitis bacterial [Unknown]

NARRATIVE: CASE EVENT DATE: 2018
